FAERS Safety Report 15120291 (Version 6)
Quarter: 2022Q3

REPORT INFORMATION
  Report Type: Report from Study
  Country: IT (occurrence: IT)
  Receive Date: 20180709
  Receipt Date: 20220716
  Transmission Date: 20221026
  Serious: Yes (Other)
  Sender: FDA-Public Use
  Company Number: IT-TEVA-2018-IT-913720

PATIENT
  Age: 16 Year
  Sex: Female

DRUGS (11)
  1. RIBAVIRIN [Suspect]
     Active Substance: RIBAVIRIN
     Indication: Chronic hepatitis C
     Dosage: 1000 MILLIGRAM TWO DOSES PER DAY (WEIGHT BASED)
     Route: 048
     Dates: start: 201510, end: 2015
  2. RIBAVIRIN [Suspect]
     Active Substance: RIBAVIRIN
     Indication: Hepatic cirrhosis
  3. OMBITASVIR\PARITAPREVIR\RITONAVIR [Suspect]
     Active Substance: OMBITASVIR\PARITAPREVIR\RITONAVIR
     Indication: Hepatitis C
     Dosage: 25/150/100 MG MG ORAL ONCE A DAY
     Route: 048
     Dates: start: 201510
  4. OMBITASVIR\PARITAPREVIR\RITONAVIR [Suspect]
     Active Substance: OMBITASVIR\PARITAPREVIR\RITONAVIR
     Indication: Hepatic cirrhosis
  5. OMBITASVIR\PARITAPREVIR\RITONAVIR [Suspect]
     Active Substance: OMBITASVIR\PARITAPREVIR\RITONAVIR
     Indication: Chronic hepatitis C
  6. OMBITASVIR [Suspect]
     Active Substance: OMBITASVIR
     Indication: Chronic hepatitis C
     Dosage: 25 MILLIGRAM, ONCE A DAY
     Route: 048
     Dates: start: 201510, end: 2015
  7. RITONAVIR [Suspect]
     Active Substance: RITONAVIR
     Indication: Hepatic cirrhosis
     Dosage: UNK
     Route: 016
  8. RITONAVIR [Suspect]
     Active Substance: RITONAVIR
     Indication: Hepatic cirrhosis
     Dosage: 100 MILLIGRAM, ONCE A DAY
     Route: 048
     Dates: start: 201510, end: 2015
  9. RITONAVIR [Suspect]
     Active Substance: RITONAVIR
     Indication: Chronic hepatitis C
  10. PARITAPREVIR [Suspect]
     Active Substance: PARITAPREVIR
     Indication: Hepatic cirrhosis
     Dosage: UNK
     Route: 016
  11. PARITAPREVIR [Suspect]
     Active Substance: PARITAPREVIR
     Indication: Chronic hepatitis C
     Dosage: 150 MILLIGRAM, ONCE A DAY
     Route: 048
     Dates: start: 201510, end: 2015

REACTIONS (3)
  - Treatment failure [Recovered/Resolved]
  - Pathogen resistance [Unknown]
  - Off label use [Unknown]

NARRATIVE: CASE EVENT DATE: 20150101
